FAERS Safety Report 5976322-X (Version None)
Quarter: 2008Q4

REPORT INFORMATION
  Report Type: 
  Country: None (occurrence: None)
  Receive Date: 20081202
  Receipt Date: 20081201
  Transmission Date: 20090506
  Serious: Yes (Other)
  Sender: FDA-Public Use
  Company Number: TN-ROXANE LABORATORIES, INC.-2008-RO-00314RO

PATIENT
  Age: 81 Year
  Sex: Male

DRUGS (2)
  1. PREDNISONE TAB [Suspect]
     Indication: PEMPHIGOID
  2. PREDNISONE TAB [Suspect]
     Dosage: 10MG

REACTIONS (1)
  - HAIR COLOUR CHANGES [None]
